FAERS Safety Report 8842932 (Version 1)
Quarter: 2012Q4

REPORT INFORMATION
  Report Type: 
  Country: CH (occurrence: CH)
  Receive Date: 20121016
  Receipt Date: 20121016
  Transmission Date: 20130627
  Serious: Yes (Other)
  Sender: FDA-Public Use
  Company Number: CH-TEVA-364573ISR

PATIENT
  Sex: Male

DRUGS (1)
  1. TERBINAFINE HYDOCHLORIDE [Suspect]
     Route: 048
     Dates: start: 2012, end: 201210

REACTIONS (1)
  - Blindness unilateral [Not Recovered/Not Resolved]
